FAERS Safety Report 5557291-3 (Version None)
Quarter: 2007Q4

REPORT INFORMATION
  Report Type: 
  Country: None (occurrence: None)
  Receive Date: 20071214
  Receipt Date: 20071206
  Transmission Date: 20080405
  Serious: Yes (Other)
  Sender: FDA-Public Use
  Company Number: JP-BRISTOL-MYERS SQUIBB COMPANY-14012926

PATIENT
  Age: 6 Year
  Sex: Female

DRUGS (4)
  1. VEPESID [Suspect]
     Indication: OPTIC NERVE GLIOMA
     Dosage: 5 COURSES COMPLETED.
     Route: 041
  2. CYCLOPHOSPHAMIDE [Suspect]
     Route: 042
  3. ONCOVIN [Concomitant]
     Route: 042
  4. RANDA [Concomitant]
     Route: 042

REACTIONS (2)
  - HYPONATRAEMIA [None]
  - SUBDURAL HAEMATOMA [None]
